FAERS Safety Report 11773159 (Version 1)
Quarter: 2015Q4

REPORT INFORMATION
  Report Type: Spontaneous
  Country: US (occurrence: US)
  Receive Date: 20151124
  Receipt Date: 20151124
  Transmission Date: 20160304
  Serious: No
  Sender: FDA-Public Use
  Company Number: US-SUPERNUS PHARMACEUTICALS, INC.-2015SUP00090

PATIENT
  Sex: Female
  Weight: 56.69 kg

DRUGS (12)
  1. PRIMIDONE. [Concomitant]
     Active Substance: PRIMIDONE
     Dosage: 500 MG, 2X/DAY
     Dates: start: 2014, end: 201508
  2. TROKENDI XR [Suspect]
     Active Substance: TOPIRAMATE
     Indication: FAMILIAL TREMOR
     Dosage: 50 MG, 1X/DAY
     Route: 048
     Dates: start: 2014
  3. HYDROCHLOROTHIAZIDE. [Concomitant]
     Active Substance: HYDROCHLOROTHIAZIDE
     Dosage: 12.5 MG, 1X/DAY
  4. SERTRALINE [Concomitant]
     Active Substance: SERTRALINE HYDROCHLORIDE
     Dosage: 50 MG, 1X/DAY
  5. LOSARTAN. [Concomitant]
     Active Substance: LOSARTAN
     Dosage: 100 MG, 1X/DAY
     Dates: start: 2014
  6. PRIMIDONE. [Concomitant]
     Active Substance: PRIMIDONE
     Dosage: 250 MG, 1X/DAY
     Dates: start: 2014, end: 201508
  7. ATORVASTATIN [Concomitant]
     Active Substance: ATORVASTATIN
     Dosage: 20 MG, 1X/DAY
  8. PRIMIDONE. [Concomitant]
     Active Substance: PRIMIDONE
     Dosage: 250 UNK, UNK
     Dates: start: 201508
  9. ASPIRIN. [Concomitant]
     Active Substance: ASPIRIN
     Dosage: 81 MG, 1X/DAY
  10. GLYBURIDE. [Concomitant]
     Active Substance: GLYBURIDE
     Dosage: 5 MG, 2X/DAY
  11. TOPIRAMATE. [Concomitant]
     Active Substance: TOPIRAMATE
     Dosage: 25 MG, UNK
     Dates: end: 20150513
  12. TROKENDI XR [Suspect]
     Active Substance: TOPIRAMATE
     Indication: FAMILIAL TREMOR
     Dosage: 25 MG, 1X/DAY
     Route: 048
     Dates: start: 2014

REACTIONS (4)
  - Decreased appetite [Not Recovered/Not Resolved]
  - Sensory disturbance [Unknown]
  - Off label use [Not Recovered/Not Resolved]
  - Tremor [Not Recovered/Not Resolved]

NARRATIVE: CASE EVENT DATE: 2014
